FAERS Safety Report 9646303 (Version 3)
Quarter: 2014Q1

REPORT INFORMATION
  Report Type: Report from Study
  Country: AR (occurrence: AR)
  Receive Date: 20131025
  Receipt Date: 20140108
  Transmission Date: 20141002
  Serious: Yes (Hospitalization)
  Sender: FDA-Public Use
  Company Number: AR-FRI-1000050489

PATIENT
  Age: 62 Year
  Sex: Female
  Weight: 60 kg

DRUGS (7)
  1. DICLOFENAC [Concomitant]
     Indication: RHEUMATOID ARTHRITIS
     Route: 048
     Dates: start: 2011
  2. FOLIC ACID [Concomitant]
     Indication: RHEUMATOID ARTHRITIS
     Route: 048
     Dates: start: 200707
  3. ALPRAZOLAM [Concomitant]
     Indication: INSOMNIA
     Dosage: 1
     Route: 048
     Dates: start: 2011
  4. BISMUTH [Concomitant]
     Indication: DIARRHOEA
     Route: 048
     Dates: start: 201302
  5. DILTIAZEM [Concomitant]
     Indication: SINUS TACHYCARDIA
     Dosage: 180 MG
     Route: 048
     Dates: start: 20130430
  6. LOPERAMIDE [Concomitant]
     Indication: DIARRHOEA
     Route: 048
     Dates: start: 20130902
  7. ROFLUMILAST [Suspect]
     Indication: CHRONIC OBSTRUCTIVE PULMONARY DISEASE
     Dosage: 500 MCG
     Route: 048
     Dates: start: 20130122

REACTIONS (1)
  - Hip fracture [Recovering/Resolving]
